FAERS Safety Report 4349468-X (Version None)
Quarter: 2004Q2

REPORT INFORMATION
  Report Type: 
  Country: None (occurrence: None)
  Receive Date: 20040426
  Receipt Date: 20040413
  Transmission Date: 20050107
  Serious: Yes (Death, Life-Threatening, Hospitalization)
  Sender: FDA-Public Use
  Company Number: 2003125087

PATIENT
  Age: 83 Year
  Sex: Female
  Weight: 55 kg

DRUGS (8)
  1. PRO-EPANUTIN (FOSPHENYTOIN SODIUM) [Suspect]
     Indication: STATUS EPILEPTICUS
     Dosage: 15 ML (50 MG/ML) INTRAVENOUS
     Route: 042
     Dates: start: 20031126, end: 20031126
  2. HEPARIN-FRACTION, SODIUM SALT (HEPARIN-FRACTION, SODIUM SALT) [Concomitant]
  3. TRANDOLAPRIL (TRANDOLAPRIL) [Concomitant]
  4. FUROSEMIDE [Concomitant]
  5. VERAPAMIL [Concomitant]
  6. ISOPHANE INSULIN (ISOPHANE INSULIN) [Concomitant]
  7. CEFUROXIME [Concomitant]
  8. METHYLPREEDNISOLONE SODIUM SUCCINATE (METHYLPREDNISOLONE SODIUM SUCCIN [Concomitant]

REACTIONS (5)
  - BRAIN DAMAGE [None]
  - CONDITION AGGRAVATED [None]
  - DRUG INTERACTION [None]
  - DRUG TOLERANCE DECREASED [None]
  - HYPOTENSION [None]
